FAERS Safety Report 10147197 (Version 1)
Quarter: 2014Q2

REPORT INFORMATION
  Report Type: Spontaneous
  Country: FR (occurrence: FR)
  Receive Date: 20140501
  Receipt Date: 20140501
  Transmission Date: 20141212
  Serious: Yes (Other)
  Sender: FDA-Public Use
  Company Number: PHHY2014FR050991

PATIENT
  Sex: Male

DRUGS (1)
  1. PREDNISOLONE SANDOZ [Suspect]
     Dosage: 20 MG, UNK

REACTIONS (1)
  - Urticaria [Unknown]
